FAERS Safety Report 9416846 (Version 1)
Quarter: 2013Q3

REPORT INFORMATION
  Report Type: Spontaneous
  Country: US (occurrence: US)
  Receive Date: 20130724
  Receipt Date: 20130724
  Transmission Date: 20140515
  Serious: Yes (Other)
  Sender: FDA-Public Use
  Company Number: US-JNJFOC-20130708429

PATIENT
  Sex: Female

DRUGS (1)
  1. ORTHO TRI-CYCLEN LO [Suspect]
     Indication: CONTRACEPTION
     Route: 048

REACTIONS (7)
  - Multiple sclerosis [Unknown]
  - Coeliac disease [Unknown]
  - Lactose intolerance [Unknown]
  - Food allergy [Unknown]
  - Food allergy [Unknown]
  - Therapeutic response unexpected [Unknown]
  - Drug ineffective [Unknown]
